FAERS Safety Report 16261591 (Version 1)
Quarter: 2019Q2

REPORT INFORMATION
  Report Type: Spontaneous
  Country: US (occurrence: US)
  Receive Date: 20190501
  Receipt Date: 20190501
  Transmission Date: 20190711
  Serious: Yes (Disabling, Other)
  Sender: FDA-Public Use
  Company Number: US-PFIZER INC-2019177739

PATIENT
  Age: 60 Year
  Sex: Female
  Weight: 72.57 kg

DRUGS (8)
  1. LYRICA [Suspect]
     Active Substance: PREGABALIN
     Dosage: 50 MG, UNK (ONE CAPSULE MORNING AND 2 CAPSULES AT NIGHT)
     Dates: start: 2011
  2. LYRICA [Suspect]
     Active Substance: PREGABALIN
     Indication: EPILEPSY
     Dosage: 200 MG, 2X/DAY
  3. ONFI [Concomitant]
     Active Substance: CLOBAZAM
     Indication: EPILEPSY
     Dosage: 10 MG, 2X/DAY
  4. LYRICA [Suspect]
     Active Substance: PREGABALIN
     Dosage: 100 MG, 3X/DAY
  5. KEPPRA [Concomitant]
     Active Substance: LEVETIRACETAM
     Indication: EPILEPSY
     Dosage: 200 MG, 2X/DAY
     Route: 048
     Dates: start: 2008
  6. ONFI [Concomitant]
     Active Substance: CLOBAZAM
     Dosage: 5 MG, ALTERNATE DAY (EVERY OTHER DAY)
     Route: 048
  7. SYNTHROID [Concomitant]
     Active Substance: LEVOTHYROXINE SODIUM
     Indication: HYPOTHYROIDISM
     Dosage: 0.125 UG, 1X/DAY
     Route: 048
     Dates: start: 2000
  8. QVAR [Concomitant]
     Active Substance: BECLOMETHASONE DIPROPIONATE
     Indication: ASTHMA
     Dosage: UNK UNK, 2X/DAY(2 PUFFS TWICE DAILY INHALED)
     Route: 055

REACTIONS (9)
  - Deafness [Not Recovered/Not Resolved]
  - Condition aggravated [Unknown]
  - Tinnitus [Unknown]
  - Drug ineffective [Unknown]
  - Drug intolerance [Unknown]
  - Emotional distress [Unknown]
  - Hypoacusis [Not Recovered/Not Resolved]
  - Withdrawal syndrome [Unknown]
  - Pain [Unknown]

NARRATIVE: CASE EVENT DATE: 201804
